FAERS Safety Report 7399690-3 (Version None)
Quarter: 2011Q2

REPORT INFORMATION
  Report Type: 
  Country: None (occurrence: None)
  Receive Date: 20110407
  Receipt Date: 20110330
  Transmission Date: 20111010
  Serious: Yes (Hospitalization)
  Sender: FDA-Public Use
  Company Number: NL-ROCHE-750690

PATIENT
  Weight: 82 kg

DRUGS (5)
  1. PRIMPERAN TAB [Concomitant]
  2. OMEPRAZOLE [Concomitant]
  3. CISPLATIN [Suspect]
     Indication: GASTRIC CANCER
     Dosage: INTERRUPTED. DOSAGE PER PROTOCOL. LAST DOSE PRIOR TO SAE 16 DEC 2010
     Route: 042
     Dates: start: 20101126, end: 20101227
  4. CAPECITABINE [Suspect]
     Indication: GASTRIC CANCER
     Dosage: INTERRUPTED. D1-D14 EVERY 3 WEEKS;ROUTE,FORM,DOSAGE PER PROTOCOL. LAST DOSE PRIOR TO SAE 17 DEC 2010
     Route: 048
     Dates: start: 20101126, end: 20101227
  5. EPIRUBICIN [Suspect]
     Indication: GASTRIC CANCER
     Dosage: INTERRUPTED.  DOSAGE PER PROTOCOL.  LAST DOSE PRIOR TO SAE 16 DEC 2010
     Route: 042
     Dates: start: 20101126, end: 20101227

REACTIONS (3)
  - INFECTION [None]
  - DEHYDRATION [None]
  - RENAL FAILURE [None]
